FAERS Safety Report 12328553 (Version 1)
Quarter: 2016Q2

REPORT INFORMATION
  Report Type: Spontaneous
  Country: US (occurrence: US)
  Receive Date: 20160503
  Receipt Date: 20160503
  Transmission Date: 20160815
  Serious: No
  Sender: FDA-Public Use
  Company Number: US-BEH-2015049104

PATIENT
  Sex: Female
  Weight: 95 kg

DRUGS (35)
  1. ACETAMINOPHEN. [Concomitant]
     Active Substance: ACETAMINOPHEN
  2. AMOX TR K CLV [Concomitant]
     Active Substance: AMOXICILLIN\CLAVULANATE POTASSIUM
  3. HYDROCHLOROTHIAZIDE. [Concomitant]
     Active Substance: HYDROCHLOROTHIAZIDE
  4. EVISTA [Concomitant]
     Active Substance: RALOXIFENE HYDROCHLORIDE
  5. SINGULAIR [Concomitant]
     Active Substance: MONTELUKAST SODIUM
  6. HYALURONIC ACID [Concomitant]
     Active Substance: HYALURONIC ACID
  7. LIDOCAINE. [Concomitant]
     Active Substance: LIDOCAINE
  8. PULMICORT TURBUHALER [Concomitant]
     Active Substance: BUDESONIDE
  9. OSTEO BI FLEX [Concomitant]
  10. ZINC [Concomitant]
     Active Substance: ZINC\ZINC CHLORIDE
  11. TESSALON [Concomitant]
     Active Substance: BENZONATATE
  12. EPIPEN [Concomitant]
     Active Substance: EPINEPHRINE
  13. CEFDINIR. [Concomitant]
     Active Substance: CEFDINIR
  14. NEXIUM [Concomitant]
     Active Substance: ESOMEPRAZOLE MAGNESIUM
  15. BENICAR [Concomitant]
     Active Substance: OLMESARTAN MEDOXOMIL
  16. VITAMIN B12 [Concomitant]
     Active Substance: CYANOCOBALAMIN
  17. XOPENEX [Concomitant]
     Active Substance: LEVALBUTEROL HYDROCHLORIDE
  18. CYCLOBENZAPRINE [Concomitant]
     Active Substance: CYCLOBENZAPRINE
  19. NAPROXEN SODIUM. [Concomitant]
     Active Substance: NAPROXEN SODIUM
  20. BIOTIN [Concomitant]
     Active Substance: BIOTIN
  21. HIZENTRA [Suspect]
     Active Substance: HUMAN IMMUNOGLOBULIN G
     Route: 058
  22. HIZENTRA [Suspect]
     Active Substance: HUMAN IMMUNOGLOBULIN G
     Route: 058
  23. FOLIC ACID. [Concomitant]
     Active Substance: FOLIC ACID
  24. CALCITRATE + VITAMIN D [Concomitant]
  25. A THRU Z SELECT MULTIVITAMIN [Concomitant]
  26. LOVAZA [Concomitant]
     Active Substance: OMEGA-3-ACID ETHYL ESTERS
  27. HIZENTRA [Suspect]
     Active Substance: HUMAN IMMUNOGLOBULIN G
     Indication: PRODUCT USED FOR UNKNOWN INDICATION
     Route: 058
  28. CALCIUM [Concomitant]
     Active Substance: CALCIUM
  29. VITAMIN B6 [Concomitant]
     Active Substance: PYRIDOXINE HYDROCHLORIDE
  30. OCUVITE [Concomitant]
     Active Substance: VITAMINS
  31. ACETYL L CARNITINE [Concomitant]
  32. HYOSCYAMINE. [Concomitant]
     Active Substance: HYOSCYAMINE
  33. SYMBICORT [Concomitant]
     Active Substance: BUDESONIDE\FORMOTEROL FUMARATE DIHYDRATE
     Dosage: 160-4.5 MCG
  34. DIPHENHYDRAMINE. [Concomitant]
     Active Substance: DIPHENHYDRAMINE
  35. ZETIA [Concomitant]
     Active Substance: EZETIMIBE

REACTIONS (3)
  - Headache [Not Recovered/Not Resolved]
  - Infusion site extravasation [Not Recovered/Not Resolved]
  - Oropharyngeal pain [Not Recovered/Not Resolved]
